FAERS Safety Report 23548259 (Version 1)
Quarter: 2024Q1

REPORT INFORMATION
  Report Type: Spontaneous
  Country: US (occurrence: None)
  Receive Date: 20240220
  Receipt Date: 20240220
  Transmission Date: 20240410
  Serious: No
  Sender: FDA-Public Use
  Company Number: None

PATIENT
  Age: 48 Year
  Sex: Female

DRUGS (11)
  1. AMBRISENTAN [Suspect]
     Active Substance: AMBRISENTAN
     Indication: Pulmonary hypertension
     Dosage: FREQUENCY : DAILY;?
     Route: 048
     Dates: start: 20220315
  2. CEPHALEXIN [Concomitant]
     Active Substance: CEPHALEXIN
  3. CLINDAMYCIN [Concomitant]
     Active Substance: CLINDAMYCIN
  4. SILDENAFIL [Concomitant]
     Active Substance: SILDENAFIL
  5. FUROSEMIDE [Concomitant]
     Active Substance: FUROSEMIDE
  6. TOPIRAMATE [Concomitant]
     Active Substance: TOPIRAMATE
  7. METFORMIN [Concomitant]
     Active Substance: METFORMIN HYDROCHLORIDE
  8. NORCO [Concomitant]
     Active Substance: ACETAMINOPHEN\HYDROCODONE BITARTRATE
  9. TYLENOL [Concomitant]
     Active Substance: ACETAMINOPHEN
  10. MELATONIN [Concomitant]
     Active Substance: MELATONIN
  11. ALBUTEROL [Concomitant]
     Active Substance: ALBUTEROL

REACTIONS (4)
  - Cardiac failure [None]
  - Acute kidney injury [None]
  - Obesity [None]
  - Therapy interrupted [None]

NARRATIVE: CASE EVENT DATE: 20240220
